FAERS Safety Report 4372267-X (Version None)
Quarter: 2004Q2

REPORT INFORMATION
  Report Type: 
  Country: None (occurrence: None)
  Receive Date: 20040603
  Receipt Date: 20040603
  Transmission Date: 20050107
  Serious: Yes (Other)
  Sender: FDA-Public Use
  Company Number: None

PATIENT
  Age: 56 Year
  Sex: Female
  Weight: 70.3075 kg

DRUGS (1)
  1. ZICAM - NASAL GEL [Suspect]
     Indication: NASOPHARYNGITIS
     Dosage: AS PRINTED
     Dates: start: 20020101, end: 20030101

REACTIONS (1)
  - ANOSMIA [None]
